FAERS Safety Report 4717740-7 (Version None)
Quarter: 2005Q3

REPORT INFORMATION
  Report Type: 
  Country: None (occurrence: None)
  Receive Date: 20050714
  Receipt Date: 20050103
  Transmission Date: 20060218
  Serious: No
  Sender: FDA-Public Use
  Company Number: 0010105

PATIENT
  Sex: Female

DRUGS (1)
  1. TINDAMAX [Suspect]
     Dates: start: 20041201, end: 20050101

REACTIONS (1)
  - NAUSEA [None]
